FAERS Safety Report 7042103-1 (Version None)
Quarter: 2010Q4

REPORT INFORMATION
  Report Type: 
  Country: None (occurrence: None)
  Receive Date: 20101013
  Receipt Date: 20100611
  Transmission Date: 20110411
  Serious: No
  Sender: FDA-Public Use
  Company Number: US-ASTRAZENECA-2010SE27417

PATIENT
  Age: 65 Year
  Sex: Male
  Weight: 106.6 kg

DRUGS (2)
  1. SYMBICORT [Suspect]
     Dosage: 1 PUFF
     Route: 055
     Dates: start: 20100501, end: 20100501
  2. SYMBICORT [Suspect]
     Dosage: 2 PUFFS
     Route: 055
     Dates: start: 20100501

REACTIONS (3)
  - DRUG INEFFECTIVE [None]
  - DYSPHONIA [None]
  - INCORRECT DOSE ADMINISTERED [None]
